FAERS Safety Report 12355696 (Version 1)
Quarter: 2016Q2

REPORT INFORMATION
  Report Type: Spontaneous
  Country: NG (occurrence: NG)
  Receive Date: 20160511
  Receipt Date: 20160511
  Transmission Date: 20160815
  Serious: Yes (Death)
  Sender: FDA-Public Use
  Company Number: NG-PFIZER INC-2016246800

PATIENT
  Sex: Female

DRUGS (6)
  1. TYGACIL [Suspect]
     Active Substance: TIGECYCLINE
     Dosage: 100 MG, SINGLE
     Dates: start: 20160501, end: 20160501
  2. NORMAL SALINE [Concomitant]
     Active Substance: SODIUM CHLORIDE
  3. MERONEM [Concomitant]
     Active Substance: MEROPENEM
     Indication: URINARY TRACT INFECTION
     Dosage: 2 G, 3X/DAY
     Route: 042
     Dates: start: 20160502, end: 20160503
  4. MERONEM [Concomitant]
     Active Substance: MEROPENEM
     Indication: SEPSIS
  5. PARACETAMOL [Concomitant]
     Active Substance: ACETAMINOPHEN
  6. OMEPRAZOLE. [Concomitant]
     Active Substance: OMEPRAZOLE

REACTIONS (1)
  - Death [Fatal]

NARRATIVE: CASE EVENT DATE: 20160503
